FAERS Safety Report 6936128-1 (Version None)
Quarter: 2010Q3

REPORT INFORMATION
  Report Type: 
  Country: None (occurrence: None)
  Receive Date: 20100823
  Receipt Date: 20081120
  Transmission Date: 20110219
  Serious: Yes (Hospitalization, Other)
  Sender: FDA-Public Use
  Company Number: CA-SANOFI-AVENTIS-F01200701603

PATIENT
  Age: 58 Year
  Sex: Male

DRUGS (55)
  1. CLOPIDOGREL BISULFATE [Suspect]
     Indication: ACUTE CORONARY SYNDROME
     Route: 048
     Dates: start: 20071018, end: 20071023
  2. CLOPIDOGREL BISULFATE [Suspect]
     Route: 048
     Dates: start: 20071028
  3. RIVAROXABAN [Suspect]
     Indication: ACUTE CORONARY SYNDROME
     Dosage: UNIT DOSE: 15 MG
     Route: 048
     Dates: start: 20071018, end: 20071022
  4. ASPIRIN [Suspect]
     Indication: ACUTE CORONARY SYNDROME
     Route: 048
     Dates: start: 20071018, end: 20071026
  5. ASPIRIN [Suspect]
     Route: 048
     Dates: start: 20071030
  6. CRESTOR [Concomitant]
     Route: 048
  7. COVERSYL /FRA/ [Concomitant]
     Indication: HYPERTENSION
     Route: 048
     Dates: start: 20071019, end: 20071228
  8. COVERSYL /FRA/ [Concomitant]
     Route: 048
     Dates: start: 20080118
  9. IMDUR [Concomitant]
     Route: 048
  10. IMDUR [Concomitant]
     Indication: CORONARY ARTERY DISEASE
     Route: 048
  11. IMDUR [Concomitant]
     Route: 048
     Dates: start: 20080128
  12. IMDUR [Concomitant]
     Route: 048
     Dates: start: 20080128
  13. MONOCOR [Concomitant]
     Indication: HYPERTENSION
     Route: 048
     Dates: start: 20071019
  14. MONOCOR [Concomitant]
     Route: 048
     Dates: start: 20071221
  15. METOPROLOL TARTRATE [Concomitant]
     Indication: HYPERTENSION
     Route: 048
     Dates: end: 20071018
  16. HYDROMORPHONE [Concomitant]
     Indication: BACK PAIN
     Route: 048
  17. HEPARIN [Concomitant]
     Route: 042
     Dates: start: 20071016, end: 20071018
  18. HEPARIN [Concomitant]
     Dosage: DOSE:5000 UNIT(S)
     Route: 065
     Dates: start: 20071220, end: 20071220
  19. HEPARIN [Concomitant]
     Dosage: DOSE:2400 UNIT(S)
     Route: 065
     Dates: start: 20071220, end: 20071221
  20. ASPIRIN [Concomitant]
     Route: 048
     Dates: end: 20071017
  21. ASPIRIN [Concomitant]
     Route: 048
     Dates: start: 20071023
  22. ASPIRIN [Concomitant]
     Route: 065
     Dates: start: 20071016
  23. ASPIRIN [Concomitant]
     Route: 065
     Dates: start: 20071220, end: 20071220
  24. PLAVIX [Concomitant]
     Route: 048
     Dates: end: 20071017
  25. PANTOPRAZOLE SODIUM [Concomitant]
  26. GLUCOPHAGE ^UNS^ [Concomitant]
  27. COLCHICINE [Concomitant]
  28. ATIVAN [Concomitant]
  29. MS CONTIN [Concomitant]
  30. COLACE [Concomitant]
  31. SENOKOT [Concomitant]
  32. PROSCAR [Concomitant]
  33. LYRICA [Concomitant]
  34. CESAMET [Concomitant]
  35. ATROVENT [Concomitant]
  36. VENTOLIN [Concomitant]
  37. DESYREL [Concomitant]
  38. IMDUR [Concomitant]
  39. ACETAMINOPHEN [Concomitant]
  40. DILAUDID [Concomitant]
     Dates: end: 20071029
  41. NITROLINGUAL [Concomitant]
  42. FUROSEMIDE [Concomitant]
     Dates: start: 20071220
  43. TAMSULOSIN HCL [Concomitant]
     Dates: start: 20071224
  44. MOXIFLOXACIN [Concomitant]
     Dates: start: 20071225, end: 20071226
  45. FERROUS SULFATE [Concomitant]
     Dates: start: 20071229
  46. INDOMETHACIN [Concomitant]
     Dates: start: 20071230
  47. ACETYLCYSTEINE [Concomitant]
     Dates: start: 20080102, end: 20080103
  48. MIDAZOLAM HCL [Concomitant]
     Dates: start: 20080103, end: 20080103
  49. DIMENHYDRINATE [Concomitant]
     Dates: start: 20071221, end: 20071221
  50. ENOXAPARIN SODIUM [Concomitant]
     Dates: start: 20071023, end: 20071023
  51. ENOXAPARIN SODIUM [Concomitant]
     Dates: start: 20071024, end: 20071029
  52. ENOXAPARIN SODIUM [Concomitant]
     Dates: start: 20071224, end: 20071229
  53. PANTOPRAZOLE SODIUM [Concomitant]
     Route: 048
  54. COLCHICINE [Concomitant]
     Indication: GOUT
     Dosage: DOSE TEXT: MG
     Route: 048
  55. FERROUS SULFATE [Concomitant]
     Route: 048
     Dates: start: 20080101

REACTIONS (2)
  - ANGINA UNSTABLE [None]
  - HAEMOGLOBIN DECREASED [None]
